FAERS Safety Report 18570000 (Version 3)
Quarter: 2022Q3

REPORT INFORMATION
  Report Type: Other
  Country: US (occurrence: US)
  Receive Date: 20201202
  Receipt Date: 20220801
  Transmission Date: 20221026
  Serious: No
  Sender: FDA-Public Use
  Company Number: US-DECIPHERA PHARMACEUTICALS LLC-2020-US-000645

PATIENT
  Sex: Female

DRUGS (2)
  1. QINLOCK [Suspect]
     Active Substance: RIPRETINIB
     Indication: Gastrointestinal stromal tumour
     Dosage: 150 MILLIGRAM, QD
     Route: 048
     Dates: start: 20201001
  2. QINLOCK [Suspect]
     Active Substance: RIPRETINIB
     Dosage: 150 MILLIGRAM, QD
     Route: 048

REACTIONS (8)
  - Dry mouth [Unknown]
  - Dry throat [Unknown]
  - Wound [Unknown]
  - Pain in extremity [Unknown]
  - Blood pressure increased [Not Recovered/Not Resolved]
  - Constipation [Not Recovered/Not Resolved]
  - Pruritus [Unknown]
  - Dry skin [Unknown]
